FAERS Safety Report 7746499-4 (Version None)
Quarter: 2011Q3

REPORT INFORMATION
  Report Type: 
  Country: None (occurrence: None)
  Receive Date: 20110912
  Receipt Date: 20110912
  Transmission Date: 20111222
  Serious: No
  Sender: FDA-Public Use
  Company Number: None

PATIENT
  Sex: Male

DRUGS (1)
  1. VALPROIC ACID [Suspect]
     Dosage: 500MG 4 PO BID ORAL
     Route: 048
     Dates: start: 20110501, end: 20110801

REACTIONS (5)
  - DIARRHOEA [None]
  - CONVULSION [None]
  - DRUG INTOLERANCE [None]
  - EPILEPSY [None]
  - PRODUCT SUBSTITUTION ISSUE [None]
